FAERS Safety Report 12376472 (Version 1)
Quarter: 2016Q2

REPORT INFORMATION
  Report Type: Spontaneous
  Country: ZA (occurrence: ZA)
  Receive Date: 20160517
  Receipt Date: 20160517
  Transmission Date: 20160815
  Serious: Yes (Hospitalization)
  Sender: FDA-Public Use
  Company Number: ZA-PFIZER INC-2016257387

PATIENT
  Age: 62 Year
  Sex: Male

DRUGS (6)
  1. ADVIL [Suspect]
     Active Substance: IBUPROFEN
     Indication: LUNG INFECTION
     Dosage: UNK
  2. AMUCO [Suspect]
     Active Substance: ACETYLCYSTEINE
     Indication: BRONCHITIS
  3. MOXIBAY 400 MG FILM-COATED TABLET [Suspect]
     Active Substance: MOXIFLOXACIN HYDROCHLORIDE
     Indication: BRONCHITIS
  4. AMUCO [Suspect]
     Active Substance: ACETYLCYSTEINE
     Indication: LUNG INFECTION
  5. ADVIL [Suspect]
     Active Substance: IBUPROFEN
     Indication: BRONCHITIS
  6. MOXIBAY 400 MG FILM-COATED TABLET [Suspect]
     Active Substance: MOXIFLOXACIN HYDROCHLORIDE
     Indication: LUNG INFECTION
     Dosage: UNK

REACTIONS (3)
  - Rash [Unknown]
  - Product use issue [Unknown]
  - Tremor [Unknown]
